FAERS Safety Report 7773040-2 (Version None)
Quarter: 2011Q3

REPORT INFORMATION
  Report Type: 
  Country: None (occurrence: None)
  Receive Date: 20110922
  Receipt Date: 20110509
  Transmission Date: 20111222
  Serious: Yes (Hospitalization)
  Sender: FDA-Public Use
  Company Number: US-ASTRAZENECA-2011SE27099

PATIENT
  Age: 56 Year
  Sex: Female

DRUGS (4)
  1. LAMICTAL [Concomitant]
  2. SEROQUEL [Suspect]
     Indication: BIPOLAR DISORDER
     Route: 048
  3. THYROID TAB [Concomitant]
  4. SEROQUEL [Suspect]
     Route: 048

REACTIONS (1)
  - MANIA [None]
